FAERS Safety Report 5324573-X (Version None)
Quarter: 2007Q2

REPORT INFORMATION
  Report Type: 
  Country: None (occurrence: None)
  Receive Date: 20070514
  Receipt Date: 20070503
  Transmission Date: 20071010
  Serious: Yes (Hospitalization)
  Sender: FDA-Public Use
  Company Number: US-PFIZER INC-2007036822

PATIENT
  Age: 68 Year
  Sex: Female
  Weight: 76 kg

DRUGS (12)
  1. ADRIAMYCIN PFS [Suspect]
     Indication: BREAST CANCER
     Dates: start: 20040701, end: 20041201
  2. CYTOXAN [Suspect]
     Dates: start: 20040701, end: 20041201
  3. TAXOL [Suspect]
     Dates: start: 20040701, end: 20041201
  4. ANASTROZOLE [Suspect]
     Dosage: DAILY DOSE:1MG
     Route: 048
     Dates: start: 20050325, end: 20070423
  5. PRILOSEC [Suspect]
     Dosage: DAILY DOSE:20MG
  6. ATENOLOL [Suspect]
     Indication: HYPERTENSION
     Dosage: DAILY DOSE:100MG
     Route: 048
  7. AVANDIA [Concomitant]
     Dosage: DAILY DOSE:4MG-FREQ:DAILY
  8. GLIPIZIDE [Concomitant]
     Dosage: DAILY DOSE:5MG-FREQ:TWICE DAILY
     Route: 048
  9. LASIX [Concomitant]
  10. LYRICA [Concomitant]
     Dosage: DAILY DOSE:100MG-FREQ:TWICE DAILY
     Route: 048
  11. TYLENOL [Concomitant]
     Dosage: TEXT:500MG Q.4H
  12. ACETYLSALICYLIC ACID SRT [Concomitant]

REACTIONS (1)
  - MYOCARDIAL ISCHAEMIA [None]
